FAERS Safety Report 9306770 (Version 1)
Quarter: 2013Q2

REPORT INFORMATION
  Report Type: Spontaneous
  Country: FR (occurrence: FR)
  Receive Date: 20130523
  Receipt Date: 20130523
  Transmission Date: 20140414
  Serious: Yes (Death, Congenital Anomaly)
  Sender: FDA-Public Use
  Company Number: FR-FRI-1000045329

PATIENT
  Sex: 0

DRUGS (6)
  1. ACAMPROSATE [Suspect]
     Indication: ALCOHOLISM
     Dosage: 4 DF
     Route: 064
  2. REVIA [Suspect]
     Indication: ALCOHOLISM
     Dosage: 50 MG
     Route: 064
     Dates: end: 20121115
  3. LYRICA [Suspect]
     Indication: EPILEPSY
     Dosage: 300 MG
     Route: 064
     Dates: end: 20121115
  4. COAPROVEL [Suspect]
     Indication: HYPERTENSION
     Route: 064
     Dates: end: 20121115
  5. LOXEN [Suspect]
     Indication: HYPERTENSION
     Route: 064
     Dates: end: 20130221
  6. TAHOR [Suspect]
     Indication: DYSLIPIDAEMIA
     Dosage: 20 MG
     Route: 064
     Dates: end: 20130221

REACTIONS (5)
  - Congenital hydrocephalus [Fatal]
  - Congenital hand malformation [Fatal]
  - Umbilical hernia [Fatal]
  - Foetal exposure during pregnancy [Fatal]
  - Foetal alcohol syndrome [Fatal]
